FAERS Safety Report 21516037 (Version 2)
Quarter: 2022Q4

REPORT INFORMATION
  Report Type: Spontaneous
  Country: US (occurrence: US)
  Receive Date: 20221027
  Receipt Date: 20221128
  Transmission Date: 20230112
  Serious: No
  Sender: FDA-Public Use
  Company Number: US-BRISTOL-MYERS SQUIBB COMPANY-2022-127711

PATIENT
  Age: 88 Year
  Sex: Male
  Weight: 59 kg

DRUGS (1)
  1. REVLIMID [Suspect]
     Active Substance: LENALIDOMIDE
     Indication: Myelodysplastic syndrome
     Dosage: Q4 DAYS FOR 28 D CYCLE
     Route: 048
     Dates: start: 20211101

REACTIONS (3)
  - Fall [Unknown]
  - Off label use [Unknown]
  - Pain in extremity [Unknown]
